FAERS Safety Report 19719399 (Version 1)
Quarter: 2021Q3

REPORT INFORMATION
  Report Type: Spontaneous
  Country: DK (occurrence: DK)
  Receive Date: 20210818
  Receipt Date: 20210818
  Transmission Date: 20211014
  Serious: Yes (Other)
  Sender: FDA-Public Use
  Company Number: DK-MYLANLABS-2021M1051465

PATIENT

DRUGS (3)
  1. CISPLATIN MYLAN [Suspect]
     Active Substance: CISPLATIN
     Indication: GERM CELL CANCER METASTATIC
     Dosage: SIX COURSES, CYCLE
     Route: 065
  2. VINBLASTINE [Suspect]
     Active Substance: VINBLASTINE
     Indication: GERM CELL CANCER METASTATIC
     Dosage: SIX COURSES, 1 CYCLE
     Route: 065
  3. BLEOMYCIN [Suspect]
     Active Substance: BLEOMYCIN SULFATE
     Indication: GERM CELL CANCER METASTATIC
     Dosage: SIX COURSES CYCLE
     Route: 065

REACTIONS (2)
  - Autonomic nervous system imbalance [Unknown]
  - Erectile dysfunction [Unknown]
